FAERS Safety Report 7689259-5 (Version None)
Quarter: 2011Q3

REPORT INFORMATION
  Report Type: 
  Country: None (occurrence: None)
  Receive Date: 20110817
  Receipt Date: 20110810
  Transmission Date: 20111222
  Serious: Yes (Other)
  Sender: FDA-Public Use
  Company Number: US-JNJFOC-2011000092

PATIENT
  Sex: Female
  Weight: 65.77 kg

DRUGS (2)
  1. ZYRTEC [Suspect]
     Indication: HYPERSENSITIVITY
     Dosage: DAILY DOSE TEXT: 10MG
     Route: 048
     Dates: start: 20101226, end: 20101229
  2. ZYRTEC [Suspect]
     Indication: NASOPHARYNGITIS
     Dosage: DAILY DOSE TEXT: 10MG
     Route: 048
     Dates: start: 20101226, end: 20101229

REACTIONS (7)
  - JAW FRACTURE [None]
  - RIB FRACTURE [None]
  - PAIN [None]
  - CONTUSION [None]
  - SYNCOPE [None]
  - INJURY [None]
  - TOOTH FRACTURE [None]
